FAERS Safety Report 12998184 (Version 1)
Quarter: 2016Q4

REPORT INFORMATION
  Report Type: Spontaneous
  Country: US (occurrence: US)
  Receive Date: 20161202
  Receipt Date: 20161202
  Transmission Date: 20170207
  Serious: No
  Sender: FDA-Public Use
  Company Number: None

PATIENT
  Age: 71 Year
  Sex: Male
  Weight: 33.37 kg

DRUGS (4)
  1. BENDAMUSTINE HYDROCHLORIDE. [Suspect]
     Active Substance: BENDAMUSTINE HYDROCHLORIDE
     Dates: end: 20151209
  2. LENALIDOMIDE (CC-5013) [Suspect]
     Active Substance: LENALIDOMIDE
     Dates: end: 20161020
  3. RITUXIMAB (MOAB C2B8 ANTI CD20, CHIMERIC) [Suspect]
     Active Substance: RITUXIMAB
     Dates: end: 20160921
  4. VELCADE [Suspect]
     Active Substance: BORTEZOMIB
     Dates: end: 20151209

REACTIONS (7)
  - Blood creatinine increased [None]
  - Flank pain [None]
  - Renal cyst [None]
  - Transitional cell carcinoma [None]
  - Bladder cancer [None]
  - Adrenal adenoma [None]
  - Hydronephrosis [None]

NARRATIVE: CASE EVENT DATE: 20161104
